FAERS Safety Report 4915041-5 (Version None)
Quarter: 2006Q1

REPORT INFORMATION
  Report Type: 
  Country: None (occurrence: None)
  Receive Date: 20060215
  Receipt Date: 20060215
  Transmission Date: 20060701
  Serious: Yes (Hospitalization)
  Sender: FDA-Public Use
  Company Number: None

PATIENT
  Age: 60 Year
  Sex: Male

DRUGS (2)
  1. ASPIRIN [Suspect]
     Indication: ARTHRALGIA
     Dosage: 325MG - 30 TABLETS DAILY  PO
     Route: 048
  2. ASPIRIN [Suspect]
     Indication: SKIN ULCER
     Dosage: 325MG - 30 TABLETS DAILY  PO
     Route: 048

REACTIONS (1)
  - PEPTIC ULCER PERFORATION [None]
